FAERS Safety Report 4423132-0 (Version None)
Quarter: 2004Q3

REPORT INFORMATION
  Report Type: 
  Country: None (occurrence: None)
  Receive Date: 20040811
  Receipt Date: 20021204
  Transmission Date: 20050211
  Serious: Yes (Disabling)
  Sender: FDA-Public Use
  Company Number: DE-MERCK-0212DEU00021

PATIENT
  Age: 42 Year
  Sex: Male
  Weight: 83 kg

DRUGS (6)
  1. ASPIRIN [Concomitant]
     Indication: MYOCARDIAL INFARCTION
     Route: 048
     Dates: start: 20010501
  2. ATORVASTATIN [Suspect]
     Indication: TYPE IIA HYPERLIPIDAEMIA
     Route: 048
     Dates: start: 20010501, end: 20021129
  3. ATORVASTATIN [Suspect]
     Route: 048
     Dates: start: 20021201
  4. ZETIA [Suspect]
     Indication: TYPE IIA HYPERLIPIDAEMIA
     Route: 048
     Dates: start: 20021107, end: 20021129
  5. LISINOPRIL [Concomitant]
     Route: 048
     Dates: start: 20010501
  6. METOPROLOL [Concomitant]
     Route: 048
     Dates: start: 20010501

REACTIONS (3)
  - DRUG INTERACTION [None]
  - MYOSITIS [None]
  - TENDON DISORDER [None]
